FAERS Safety Report 6966724-7 (Version None)
Quarter: 2010Q3

REPORT INFORMATION
  Report Type: 
  Country: None (occurrence: None)
  Receive Date: 20100906
  Receipt Date: 20100830
  Transmission Date: 20110219
  Serious: Yes (Other)
  Sender: FDA-Public Use
  Company Number: US-ASTRAZENECA-2007UW27681

PATIENT
  Age: 760 Month
  Sex: Female
  Weight: 80.7 kg

DRUGS (9)
  1. SEROQUEL [Suspect]
     Indication: ANXIETY
     Dosage: 50 MG TO 300 MG
     Route: 048
     Dates: start: 20040101, end: 20070401
  2. SEROQUEL [Suspect]
     Indication: DEPRESSION
     Dosage: 50 MG TO 300 MG
     Route: 048
     Dates: start: 20040101, end: 20070401
  3. SEROQUEL [Suspect]
     Indication: BIPOLAR DISORDER
     Dosage: 50 MG TO 300 MG
     Route: 048
     Dates: start: 20040101, end: 20070401
  4. SEROQUEL [Suspect]
     Dosage: 50-300 MG
     Route: 048
     Dates: start: 20020608, end: 20080213
  5. SEROQUEL [Suspect]
     Dosage: 50-300 MG
     Route: 048
     Dates: start: 20020608, end: 20080213
  6. SEROQUEL [Suspect]
     Dosage: 50-300 MG
     Route: 048
     Dates: start: 20020608, end: 20080213
  7. RISPERDAL [Concomitant]
     Indication: DEPRESSION
     Dates: start: 20050101
  8. ZYPREXA [Concomitant]
     Indication: DEPRESSION
     Dosage: 10 TO 15 MG
     Dates: start: 20050101, end: 20070101
  9. CYMBALTA [Concomitant]

REACTIONS (8)
  - DIABETES MELLITUS [None]
  - DIABETIC COMPLICATION [None]
  - GASTROINTESTINAL DISORDER [None]
  - GLYCOSURIA [None]
  - HYPERGLYCAEMIA [None]
  - OBESITY [None]
  - TYPE 2 DIABETES MELLITUS [None]
  - WEIGHT INCREASED [None]
